FAERS Safety Report 6057350-5 (Version None)
Quarter: 2009Q1

REPORT INFORMATION
  Report Type: 
  Country: None (occurrence: None)
  Receive Date: 20090129
  Receipt Date: 20081120
  Transmission Date: 20090719
  Serious: No
  Sender: FDA-Public Use
  Company Number: A0757452A

PATIENT
  Age: 43 Year
  Sex: Female

DRUGS (2)
  1. BUPROPION HCL [Suspect]
     Indication: COMPULSIVE SHOPPING
     Dosage: 300MG PER DAY
     Route: 048
     Dates: start: 20050101
  2. NORETHINDRONE AND ETHINYL ESTRADIOL [Concomitant]

REACTIONS (4)
  - DIZZINESS [None]
  - DRUG INEFFECTIVE [None]
  - HEADACHE [None]
  - NAUSEA [None]
